FAERS Safety Report 16192325 (Version 4)
Quarter: 2019Q2

REPORT INFORMATION
  Report Type: Spontaneous
  Country: US (occurrence: US)
  Receive Date: 20190412
  Receipt Date: 20190624
  Transmission Date: 20190711
  Serious: No
  Sender: FDA-Public Use
  Company Number: US-SA-2019SA097789

PATIENT
  Age: 56 Year
  Sex: Female

DRUGS (1)
  1. PRALUENT [Suspect]
     Active Substance: ALIROCUMAB
     Indication: HYPERLIPIDAEMIA
     Dosage: 300 MG, Q4W
     Route: 058
     Dates: start: 20190209

REACTIONS (4)
  - Injection site swelling [Unknown]
  - Myalgia [Not Recovered/Not Resolved]
  - Increased tendency to bruise [Unknown]
  - Pain [Not Recovered/Not Resolved]
